FAERS Safety Report 8306613-9 (Version None)
Quarter: 2012Q2

REPORT INFORMATION
  Report Type: 
  Country: None (occurrence: None)
  Receive Date: 20120424
  Receipt Date: 20120412
  Transmission Date: 20120825
  Serious: Yes (Life-Threatening, Hospitalization)
  Sender: FDA-Public Use
  Company Number: SE-CELGENEUS-150-21880-12031664

PATIENT
  Sex: Male
  Weight: 78 kg

DRUGS (12)
  1. CARFILZOMIB [Suspect]
     Dosage: 49 MILLIGRAM
     Route: 065
     Dates: start: 20120404
  2. DEXAMETHASONE [Suspect]
     Indication: MULTIPLE MYELOMA
     Dosage: 40 MILLIGRAM
     Route: 065
     Dates: start: 20111013, end: 20111103
  3. CARFILZOMIB [Suspect]
     Indication: MULTIPLE MYELOMA
     Dosage: 36 MILLIGRAM
     Route: 065
     Dates: start: 20111013, end: 20111014
  4. REVLIMID [Suspect]
     Dosage: 25 MILLIGRAM
     Route: 048
     Dates: start: 20120229, end: 20120313
  5. ASPIRIN [Concomitant]
     Indication: ANTIPLATELET THERAPY
     Dosage: 75 MILLIGRAM
     Route: 048
     Dates: start: 20111012, end: 20120314
  6. VALTREX [Concomitant]
     Indication: ANTIVIRAL PROPHYLAXIS
     Dosage: 500 MILLIGRAM
     Route: 048
     Dates: start: 20111012
  7. CARFILZOMIB [Suspect]
     Dosage: 49 MILLIGRAM
     Route: 065
     Dates: start: 20111020, end: 20111028
  8. INOLAXOL [Concomitant]
     Indication: CONSTIPATION
     Route: 048
     Dates: start: 20120201
  9. CARFILZOMIB [Suspect]
     Dosage: 49 MILLIGRAM
     Route: 065
     Dates: start: 20120229, end: 20120308
  10. OMEPRAZOLE [Concomitant]
     Indication: PROPHYLAXIS
     Dosage: 20 MILLIGRAM
     Route: 048
     Dates: start: 20111012
  11. REVLIMID [Suspect]
     Indication: MULTIPLE MYELOMA
     Dosage: 25 MILLIGRAM
     Route: 048
     Dates: start: 20111013, end: 20111102
  12. DEXAMETHASONE [Suspect]
     Dosage: 40 MILLIGRAM
     Route: 065
     Dates: start: 20120229, end: 20120307

REACTIONS (1)
  - CEREBROVASCULAR ACCIDENT [None]
